FAERS Safety Report 4681818-7 (Version None)
Quarter: 2005Q2

REPORT INFORMATION
  Report Type: 
  Country: None (occurrence: None)
  Receive Date: 20050602
  Receipt Date: 20050512
  Transmission Date: 20051028
  Serious: Yes (Death, Other)
  Sender: FDA-Public Use
  Company Number: GBS050417153

PATIENT
  Age: 54 Year
  Sex: Male
  Weight: 71 kg

DRUGS (3)
  1. OLANZAPINE [Suspect]
     Indication: DEPRESSION
     Dosage: 10 MG DAY
     Dates: start: 20040414
  2. OLANZAPINE [Suspect]
     Indication: PARANOIA
     Dosage: 10 MG DAY
     Dates: start: 20040414
  3. VENLAFAZINE [Concomitant]

REACTIONS (9)
  - ANXIETY [None]
  - COMPLETED SUICIDE [None]
  - INJURY ASPHYXIATION [None]
  - INTENTIONAL SELF-INJURY [None]
  - NONSPECIFIC REACTION [None]
  - PANIC ATTACK [None]
  - SCAR [None]
  - SKIN LACERATION [None]
  - WEIGHT DECREASED [None]
